FAERS Safety Report 18665124 (Version 1)
Quarter: 2020Q4

REPORT INFORMATION
  Report Type: Spontaneous
  Country: GB (occurrence: GB)
  Receive Date: 20201225
  Receipt Date: 20201225
  Transmission Date: 20210114
  Serious: Yes (Other)
  Sender: FDA-Public Use
  Company Number: GB-TEVA-2020-GB-1863959

PATIENT
  Age: 52 Year
  Sex: Male

DRUGS (10)
  1. GLICLAZIDE [Concomitant]
     Active Substance: GLICLAZIDE
  2. AMLODIPINE [Concomitant]
     Active Substance: AMLODIPINE BESYLATE
  3. RAMIPRIL. [Concomitant]
     Active Substance: RAMIPRIL
  4. PRAVASTATIN. [Concomitant]
     Active Substance: PRAVASTATIN
  5. LEVOTHYROXINE. [Concomitant]
     Active Substance: LEVOTHYROXINE
  6. DOXAZOSIN [Suspect]
     Active Substance: DOXAZOSIN MESYLATE
     Indication: URINARY RETENTION
     Dosage: 4 MILLIGRAM DAILY; AT NIGHT
     Route: 048
  7. OMEPRAZOLE. [Concomitant]
     Active Substance: OMEPRAZOLE
  8. VENLAFAXINE HYDROCHLORIDE. [Concomitant]
     Active Substance: VENLAFAXINE HYDROCHLORIDE
  9. LINAGLIPTIN [Concomitant]
     Active Substance: LINAGLIPTIN
  10. METFORMIN [Concomitant]
     Active Substance: METFORMIN HYDROCHLORIDE

REACTIONS (1)
  - Loss of consciousness [Recovered/Resolved]
